FAERS Safety Report 24172898 (Version 1)
Quarter: 2024Q3

REPORT INFORMATION
  Report Type: Spontaneous
  Country: US (occurrence: US)
  Receive Date: 20240805
  Receipt Date: 20240805
  Transmission Date: 20241017
  Serious: Yes (Hospitalization)
  Sender: MYLAN
  Company Number: US-MYLANLABS-2024M1071583

PATIENT
  Age: 65 Year
  Sex: Male

DRUGS (2)
  1. LENALIDOMIDE [Suspect]
     Active Substance: LENALIDOMIDE
     Indication: Plasma cell myeloma
     Dosage: UNK
     Route: 065
  2. DARATUMUMAB [Suspect]
     Active Substance: DARATUMUMAB
     Indication: Plasma cell myeloma
     Dosage: UNK
     Route: 065

REACTIONS (7)
  - Gastrointestinal disorder [Recovering/Resolving]
  - Histoplasmosis [Recovering/Resolving]
  - Intestinal obstruction [Recovering/Resolving]
  - Ascites [Unknown]
  - Generalised oedema [Unknown]
  - Acute kidney injury [Unknown]
  - Hyponatraemia [Unknown]
